FAERS Safety Report 10505757 (Version 1)
Quarter: 2014Q4

REPORT INFORMATION
  Report Type: Spontaneous
  Country: US (occurrence: US)
  Receive Date: 20141008
  Receipt Date: 20141008
  Transmission Date: 20150528
  Serious: Yes (Other)
  Sender: FDA-Public Use
  Company Number: US-ACTELION-A-US2014-106294

PATIENT
  Age: 46 Year
  Sex: Female

DRUGS (1)
  1. VELETRI [Suspect]
     Active Substance: EPOPROSTENOL
     Indication: PULMONARY ARTERIAL HYPERTENSION
     Dosage: 14 NG/KG, PER MIN
     Route: 042
     Dates: start: 20140916

REACTIONS (7)
  - Diarrhoea [Unknown]
  - Chest pain [Unknown]
  - Underdose [Unknown]
  - Vomiting [Unknown]
  - Memory impairment [Unknown]
  - Device issue [Unknown]
  - Incoherent [Unknown]

NARRATIVE: CASE EVENT DATE: 20140928
